FAERS Safety Report 8431846-0 (Version None)
Quarter: 2012Q2

REPORT INFORMATION
  Report Type: 
  Country: None (occurrence: None)
  Receive Date: 20120607
  Receipt Date: 20120517
  Transmission Date: 20120825
  Serious: No
  Sender: FDA-Public Use
  Company Number: CTU 477768

PATIENT
  Age: 51 Year
  Sex: Male

DRUGS (3)
  1. CLONAZEPAM [Concomitant]
  2. OXYCODONE HCL [Suspect]
     Indication: PAIN
     Dosage: 10MG - EVERY 3HRS - PO
     Route: 048
     Dates: start: 20120502
  3. PROPRANOLOL [Concomitant]

REACTIONS (2)
  - DRUG INEFFECTIVE [None]
  - ANXIETY [None]
